FAERS Safety Report 6667493-0 (Version None)
Quarter: 2010Q2

REPORT INFORMATION
  Report Type: 
  Country: None (occurrence: None)
  Receive Date: 20100405
  Receipt Date: 20100324
  Transmission Date: 20101027
  Serious: Yes (Death, Hospitalization, Other)
  Sender: FDA-Public Use
  Company Number: JP-ROCHE-693849

PATIENT
  Age: 59 Year
  Sex: Female

DRUGS (6)
  1. AVASTIN [Suspect]
     Indication: COLON CANCER METASTATIC
     Route: 041
  2. LEUCOVORIN CALCIUM [Suspect]
     Indication: COLON CANCER METASTATIC
     Route: 041
  3. LEUCOVORIN CALCIUM [Suspect]
     Route: 041
  4. FLUOROURACIL [Concomitant]
     Route: 040
  5. FLUOROURACIL [Concomitant]
     Dosage: ROUTE INTRAVENOUS DRIP
     Route: 040
  6. OXALIPLATIN [Concomitant]
     Route: 041

REACTIONS (3)
  - DISEASE PROGRESSION [None]
  - GASTROINTESTINAL PERFORATION [None]
  - PERITONITIS [None]
